FAERS Safety Report 8393581-7 (Version None)
Quarter: 2012Q2

REPORT INFORMATION
  Report Type: 
  Country: None (occurrence: None)
  Receive Date: 20120530
  Receipt Date: 20120515
  Transmission Date: 20120825
  Serious: Yes (Hospitalization, Other)
  Sender: FDA-Public Use
  Company Number: TR-AMGEN-TURSP2012012072

PATIENT
  Age: 43 Year
  Sex: Male

DRUGS (1)
  1. ENBREL [Suspect]
     Indication: ANKYLOSING SPONDYLITIS
     Dosage: 50 MG, WEEKLY
     Route: 058
     Dates: start: 20111117, end: 20120105

REACTIONS (11)
  - SNEEZING [None]
  - PARASITIC GASTROENTERITIS [None]
  - DYSPEPSIA [None]
  - ABDOMINAL DISTENSION [None]
  - DYSPNOEA [None]
  - PYREXIA [None]
  - OROPHARYNGEAL PAIN [None]
  - BLOOD PRESSURE INCREASED [None]
  - NASOPHARYNGITIS [None]
  - TACHYCARDIA [None]
  - PAIN [None]
